FAERS Safety Report 6077834-3 (Version None)
Quarter: 2009Q1

REPORT INFORMATION
  Report Type: 
  Country: None (occurrence: None)
  Receive Date: 20090213
  Receipt Date: 20090130
  Transmission Date: 20090719
  Serious: Yes (Hospitalization)
  Sender: FDA-Public Use
  Company Number: US-ELI_LILLY_AND_COMPANY-US200901002891

PATIENT
  Sex: Female

DRUGS (8)
  1. FORTEO [Suspect]
     Indication: OSTEOPOROSIS
     Dosage: 20 UG, DAILY (1/D)
     Dates: start: 20081217
  2. ROBAXIN [Concomitant]
  3. REQUIP [Concomitant]
     Indication: RESTLESS LEGS SYNDROME
  4. TRANSENE [Concomitant]
     Indication: NERVOUSNESS
     Dosage: 1 D/F, 3/D
  5. EFFEXOR [Concomitant]
     Indication: DEPRESSION
     Dosage: 1 D/F, 3/D
  6. ATENOLOL [Concomitant]
     Indication: BLOOD PRESSURE
  7. IRON [Concomitant]
     Indication: ANAEMIA
  8. PROCRIT [Concomitant]
     Indication: BLOOD DISORDER
     Dosage: 1 D/F, WEEKLY (1/W)

REACTIONS (4)
  - DEHYDRATION [None]
  - DIARRHOEA [None]
  - STAPHYLOCOCCAL INFECTION [None]
  - URINARY TRACT INFECTION [None]
